FAERS Safety Report 9925209 (Version 2)
Quarter: 2014Q1

REPORT INFORMATION
  Report Type: Spontaneous
  Country: US (occurrence: None)
  Receive Date: 20140224
  Receipt Date: 20140304
  Transmission Date: 20141002
  Serious: Yes (Hospitalization)
  Sender: FDA-Public Use
  Company Number: KAD201402-000255

PATIENT
  Age: 68 Year
  Sex: Male
  Weight: 165.2 kg

DRUGS (24)
  1. RIBAVIRIN [Suspect]
     Route: 048
     Dates: start: 20131211, end: 20140206
  2. LEDIPASVIR\SOFOSBUVIR [Suspect]
     Route: 048
     Dates: start: 20131211
  3. ALUM-MAG HYDROXIDE SIMETH (ALUMINUM HYDROXIDE, MAGNESIUM HYDROXIDE, SIMETHICONE) [Concomitant]
  4. LOSARTAN POTASSIUM (LOSARTAN POTASSIUM) [Concomitant]
  5. METFORMIN HCL (METFORMIN HCL) [Concomitant]
  6. GI COCKTAIL (GI COCKTAIL) [Concomitant]
  7. SODIUM CHLORIDE (SODIUM CHLORIDE) [Concomitant]
  8. ONDANSETRON HYDROCHLORIDE (ONDANSETRON HYDROCHLORIDE) [Concomitant]
  9. ASPIRIN (ACETYLSALICYLIC ACID) [Concomitant]
  10. MORPHINE SULFATE (MORPHINE SULFATE) INJECTION [Concomitant]
  11. HYDROMORPHONE (HYDROMORPHONE HYDROCHLORIDE) [Concomitant]
  12. PANTOPRAZOLE SODIUM (PANTOPRAZOLE SODIUM) [Concomitant]
  13. INSULIN LISPRO (INSULIN) [Concomitant]
  14. HEPARIN (HEPARIN) [Concomitant]
  15. ALPRAZOLAM (ALPRAZOLAM) [Concomitant]
  16. FINASTERIDE (FINASTERIDE) [Concomitant]
  17. VALSARTAN (VALSARTAN) [Concomitant]
  18. HCTZ (HYDROCHLOROTHIAZIDE) [Concomitant]
  19. FLOMAX (TAMSULOSIN HYDROCHLORIDE) [Concomitant]
  20. OXYBUTYNIN CHLORIDE (OXYBUTYNIN CHLORIDE) [Concomitant]
  21. NITROGLYCERIN (NITROGLYCERIN) [Concomitant]
  22. HUMALOG U-100 3M (HUMALOG U-100 3M) [Concomitant]
  23. TAMSULOSIN HYDROCHLORIDE (TAMSULOSIN HYDROCHLORIDE) [Concomitant]
  24. TEMAZEPAM (TEMAZEPAM) [Concomitant]

REACTIONS (5)
  - Anaemia [None]
  - Renal failure acute [None]
  - Gastritis [None]
  - Gastrointestinal haemorrhage [None]
  - Chest pain [None]
